FAERS Safety Report 10049189 (Version 3)
Quarter: 2015Q4

REPORT INFORMATION
  Report Type: Report from Study
  Country: US (occurrence: US)
  Receive Date: 20140401
  Receipt Date: 20151016
  Transmission Date: 20160304
  Serious: Yes (Hospitalization)
  Sender: FDA-Public Use
  Company Number: US-BIOGENIDEC-2014BI013667

PATIENT
  Age: 44 Year
  Sex: Female

DRUGS (18)
  1. OXYTROL [Concomitant]
     Active Substance: OXYBUTYNIN
  2. VITAMIN C [Concomitant]
     Active Substance: ASCORBIC ACID
  3. XANAX [Concomitant]
     Active Substance: ALPRAZOLAM
  4. LIDODERM [Concomitant]
     Active Substance: LIDOCAINE
     Route: 062
  5. TYSABRI [Suspect]
     Active Substance: NATALIZUMAB
     Indication: MULTIPLE SCLEROSIS
     Route: 042
     Dates: start: 20111101
  6. BACLOFEN. [Concomitant]
     Active Substance: BACLOFEN
     Indication: MUSCLE SPASTICITY
  7. AMPYRA [Concomitant]
     Active Substance: DALFAMPRIDINE
  8. NUVARING [Concomitant]
     Active Substance: ETHINYL ESTRADIOL\ETONOGESTREL
  9. PROZAC [Concomitant]
     Active Substance: FLUOXETINE HYDROCHLORIDE
  10. RITALIN [Concomitant]
     Active Substance: METHYLPHENIDATE HYDROCHLORIDE
  11. NORCO [Concomitant]
     Active Substance: ACETAMINOPHEN\HYDROCODONE BITARTRATE
  12. CELEBREX [Concomitant]
     Active Substance: CELECOXIB
  13. VENTOLIN [Concomitant]
     Active Substance: ALBUTEROL SULFATE
     Route: 055
  14. VITAMIN D [Concomitant]
     Active Substance: CHOLECALCIFEROL
  15. ROBAXIN [Concomitant]
     Active Substance: METHOCARBAMOL
  16. WELLBUTRIN [Concomitant]
     Active Substance: BUPROPION HYDROCHLORIDE
  17. IMITREX [Concomitant]
     Active Substance: SUMATRIPTAN\SUMATRIPTAN SUCCINATE
     Indication: HEADACHE
  18. FENTANYL. [Concomitant]
     Active Substance: FENTANYL

REACTIONS (5)
  - Pulmonary embolism [Recovered/Resolved]
  - Gait disturbance [Not Recovered/Not Resolved]
  - Multiple sclerosis relapse [Recovered/Resolved]
  - Multiple sclerosis [Not Recovered/Not Resolved]
  - Fatigue [Not Recovered/Not Resolved]

NARRATIVE: CASE EVENT DATE: 2013
